FAERS Safety Report 6166405-6 (Version None)
Quarter: 2009Q2

REPORT INFORMATION
  Report Type: 
  Country: None (occurrence: None)
  Receive Date: 20090424
  Receipt Date: 20090417
  Transmission Date: 20091009
  Serious: Yes (Death)
  Sender: FDA-Public Use
  Company Number: US-BAYER-200911203BCC

PATIENT
  Age: 37 Year
  Sex: Male

DRUGS (4)
  1. ASPIRIN [Suspect]
     Indication: DRUG USE FOR UNKNOWN INDICATION
  2. PLAVIX [Suspect]
     Indication: DRUG USE FOR UNKNOWN INDICATION
     Dosage: TOTAL DAILY DOSE: 75 MG  UNIT DOSE: 75 MG
     Route: 048
  3. PLAVIX [Suspect]
     Dosage: TOTAL DAILY DOSE: 150 MG  UNIT DOSE: 150 MG
     Route: 048
  4. COUMADIN [Suspect]
     Indication: DRUG USE FOR UNKNOWN INDICATION

REACTIONS (3)
  - HAEMORRHAGIC STROKE [None]
  - HEADACHE [None]
  - PLATELET FUNCTION TEST ABNORMAL [None]
